FAERS Safety Report 5071536-8 (Version None)
Quarter: 2006Q3

REPORT INFORMATION
  Report Type: 
  Country: None (occurrence: None)
  Receive Date: 20060714
  Receipt Date: 20060531
  Transmission Date: 20061208
  Serious: No
  Sender: FDA-Public Use
  Company Number: 2006SP002284

PATIENT
  Age: 55 Year
  Sex: Female
  Weight: 53.0709 kg

DRUGS (3)
  1. LUNESTA [Suspect]
     Indication: INSOMNIA
     Dosage: SEE IMAGE
     Route: 048
     Dates: start: 20050501, end: 20060501
  2. LUNESTA [Suspect]
     Indication: INSOMNIA
     Dosage: SEE IMAGE
     Route: 048
     Dates: start: 20060524
  3. MULTIVITAMIN [Concomitant]

REACTIONS (2)
  - FEELING OF RELAXATION [None]
  - INITIAL INSOMNIA [None]
